FAERS Safety Report 9684523 (Version 1)
Quarter: 2013Q4

REPORT INFORMATION
  Report Type: Spontaneous
  Country: FR (occurrence: None)
  Receive Date: 20131108
  Receipt Date: 20131108
  Transmission Date: 20140711
  Serious: Yes (Hospitalization, Congenital Anomaly)
  Sender: FDA-Public Use
  Company Number: 7246276

PATIENT
  Age: 0 Day
  Sex: Male

DRUGS (3)
  1. LEVOTHYROX [Suspect]
     Indication: PRODUCT USED FOR UNKNOWN INDICATION
     Dosage: 175 MCG (175 MCG, 1 IN 1 D)?DURING ALL PREGNANCY
     Route: 064
  2. DEPAKINE [Suspect]
     Indication: PRODUCT USED FOR UNKNOWN INDICATION
     Dosage: 2 DF (2 DF, 1 IN 1 D)?DURING ALL PREGNANCY
     Route: 064
  3. FOLIC ACID (FOLIC ACID) (FOLIC ACID) [Concomitant]

REACTIONS (12)
  - Congenital cystic kidney disease [None]
  - Congenital aortic anomaly [None]
  - Ventricular septal defect [None]
  - Congenital hydronephrosis [None]
  - Autism [None]
  - Foetal exposure during pregnancy [None]
  - Renal hypertrophy [None]
  - Congenital pyelocaliectasis [None]
  - Congenital aortic stenosis [None]
  - Cardiac failure [None]
  - Psychomotor retardation [None]
  - Maternal drugs affecting foetus [None]
